FAERS Safety Report 12212071 (Version 1)
Quarter: 2016Q1

REPORT INFORMATION
  Report Type: Report from Study
  Country: JP (occurrence: JP)
  Receive Date: 20160325
  Receipt Date: 20160325
  Transmission Date: 20160526
  Serious: Yes (Death)
  Sender: FDA-Public Use
  Company Number: JP-PFIZER INC-2016150048

PATIENT
  Age: 59 Year

DRUGS (2)
  1. TRASTUZUMAB [Suspect]
     Active Substance: TRASTUZUMAB
     Indication: BREAST CANCER METASTATIC
     Dosage: UNK, WEEKLY
  2. IRINOTECAN HCL [Suspect]
     Active Substance: IRINOTECAN HYDROCHLORIDE
     Indication: BREAST CANCER METASTATIC
     Dosage: 100 MG/M2, CYCLIC ((3 CONSECUTIVE WEEKS AND 1 WEEK DRUG HOLIDAY)

REACTIONS (2)
  - Neutropenia [Fatal]
  - Sepsis [Fatal]
